FAERS Safety Report 22710133 (Version 5)
Quarter: 2024Q1

REPORT INFORMATION
  Report Type: Report from Study
  Country: US (occurrence: US)
  Receive Date: 20230717
  Receipt Date: 20240301
  Transmission Date: 20240409
  Serious: Yes (Other)
  Sender: FDA-Public Use
  Company Number: US-ABBVIE-5329340

PATIENT
  Sex: Female
  Weight: 59 kg

DRUGS (2)
  1. RESTASIS [Suspect]
     Active Substance: CYCLOSPORINE
     Indication: Cataract
     Dosage: ONE DROP TWICE DAILY IN EACH EYE?FORM STRENGTH WAS 0.5MG/ML
     Route: 047
  2. RESTASIS [Suspect]
     Active Substance: CYCLOSPORINE
     Indication: Dry eye

REACTIONS (5)
  - Cataract [Recovered/Resolved]
  - Radial keratotomy [Unknown]
  - Cystocele [Recovered/Resolved]
  - Dry eye [Not Recovered/Not Resolved]
  - Feeling abnormal [Not Recovered/Not Resolved]

NARRATIVE: CASE EVENT DATE: 20230101
